FAERS Safety Report 21937404 (Version 1)
Quarter: 2023Q1

REPORT INFORMATION
  Report Type: Spontaneous
  Country: NZ (occurrence: None)
  Receive Date: 20230201
  Receipt Date: 20230201
  Transmission Date: 20230418
  Serious: Yes (Hospitalization)
  Sender: FDA-Public Use
  Company Number: 2023A026641

PATIENT
  Age: 19 Year
  Sex: Male
  Weight: 200 kg

DRUGS (5)
  1. SYMBICORT [Suspect]
     Active Substance: BUDESONIDE\FORMOTEROL FUMARATE DIHYDRATE
     Dosage: 200
     Route: 055
     Dates: start: 20220801, end: 20221201
  2. METFORMIN [Concomitant]
     Active Substance: METFORMIN HYDROCHLORIDE
  3. PREDNISOLONE [Concomitant]
     Active Substance: PREDNISOLONE
     Dosage: FOUR DAYS
  4. SERETIDE [Concomitant]
     Active Substance: FLUTICASONE PROPIONATE\SALMETEROL XINAFOATE
  5. ALBUTEROL [Concomitant]
     Active Substance: ALBUTEROL

REACTIONS (5)
  - Lactose intolerance [Recovered/Resolved]
  - Product dose omission issue [Recovered/Resolved]
  - Chest pain [Unknown]
  - Asthma [Unknown]
  - Gastrointestinal disorder [Unknown]

NARRATIVE: CASE EVENT DATE: 20221201
